FAERS Safety Report 5177553-1 (Version None)
Quarter: 2006Q4

REPORT INFORMATION
  Report Type: 
  Country: None (occurrence: None)
  Receive Date: 20061218
  Receipt Date: 20060427
  Transmission Date: 20070319
  Serious: Yes (Death)
  Sender: FDA-Public Use
  Company Number: US-BOEHRINGER INGELHEIM PHARMACEUTICALS, INC.-2006-BP-04794BP

PATIENT
  Sex: Male
  Weight: 54.09 kg

DRUGS (16)
  1. APTIVUS/RITONAVIR CAPSULES [Suspect]
     Indication: HIV INFECTION
     Dosage: TPV/R 1000/400 MG
     Route: 048
     Dates: start: 20050918, end: 20060324
  2. APTIVUS/RITONAVIR CAPSULES [Suspect]
     Indication: DRUG RESISTANCE
  3. DEPAKOTE [Concomitant]
     Indication: CONVULSION
     Route: 048
     Dates: end: 20030101
  4. TOPAMAX [Concomitant]
     Indication: CONVULSION
     Route: 048
     Dates: start: 20051207, end: 20060324
  5. DURAGESIC-100 [Concomitant]
     Route: 061
     Dates: start: 20060321
  6. VALCYTE [Concomitant]
     Route: 048
     Dates: start: 20060221
  7. AMBIEN [Concomitant]
     Route: 048
     Dates: start: 20060221
  8. PEPCID [Concomitant]
     Dates: start: 20051205
  9. TRIMETHOPRIM-SULFAMETHOXAZOLE [Concomitant]
     Dates: start: 20030101
  10. RISPERDAL [Concomitant]
     Dates: start: 20050601
  11. ACYCLOVIR [Concomitant]
     Dates: start: 20050601
  12. MARINOL [Concomitant]
     Dates: start: 20050622
  13. LEXAPRO [Concomitant]
     Dates: start: 20050525
  14. LEVITRA [Concomitant]
  15. TRUVADA [Concomitant]
     Dates: start: 20040817
  16. DDI [Concomitant]
     Dates: start: 20040917

REACTIONS (7)
  - CARDIAC ARREST [None]
  - CARDIAC DISORDER [None]
  - CONVULSION [None]
  - CYTOMEGALOVIRUS OESOPHAGITIS [None]
  - DEATH [None]
  - NERVOUS SYSTEM DISORDER [None]
  - SUDDEN DEATH [None]
